FAERS Safety Report 5970911-4 (Version None)
Quarter: 2008Q4

REPORT INFORMATION
  Report Type: 
  Country: None (occurrence: None)
  Receive Date: 20081128
  Receipt Date: 20081118
  Transmission Date: 20090506
  Serious: Yes (Death, Life-Threatening, Hospitalization, Other)
  Sender: FDA-Public Use
  Company Number: PHBS2008JP06272

PATIENT
  Age: 43 Year
  Sex: Female

DRUGS (7)
  1. SANDIMMUNE [Suspect]
     Indication: CORD BLOOD TRANSPLANT THERAPY
     Dosage: UNK
     Route: 041
     Dates: start: 20071031, end: 20071206
  2. SANDIMMUNE [Suspect]
     Indication: PROPHYLAXIS AGAINST GRAFT VERSUS HOST DISEASE
     Dosage: UNK
     Route: 041
     Dates: start: 20071220, end: 20080314
  3. METHOTREXATE [Suspect]
     Indication: PROPHYLAXIS AGAINST GRAFT VERSUS HOST DISEASE
  4. IRRADIATION [Concomitant]
     Dosage: 12 GY
  5. CYCLOPHOSPHAMIDE [Concomitant]
     Dosage: 120 MG/KG
  6. FLUDARABINE PHOSPHATE [Concomitant]
     Dosage: 125 MG/KG
  7. MELPHALAN [Concomitant]
     Dosage: 80 MG/KG

REACTIONS (8)
  - CORD BLOOD TRANSPLANT THERAPY [None]
  - DISSEMINATED TUBERCULOSIS [None]
  - ENGRAFT FAILURE [None]
  - GRAFT VERSUS HOST DISEASE [None]
  - HYPOXIA [None]
  - PYREXIA [None]
  - RASH [None]
  - WEIGHT INCREASED [None]
